FAERS Safety Report 7380418-8 (Version None)
Quarter: 2011Q1

REPORT INFORMATION
  Report Type: 
  Country: None (occurrence: None)
  Receive Date: 20110329
  Receipt Date: 20110322
  Transmission Date: 20110831
  Serious: Yes (Hospitalization)
  Sender: FDA-Public Use
  Company Number: AT-ROCHE-765394

PATIENT
  Sex: Female
  Weight: 62 kg

DRUGS (9)
  1. TRASTUZUMAB [Suspect]
     Dosage: LAST DOSE PRIOR TO SAE: 03 FEB 2011. FORM: VIALS. DOSE LEVEL; 370 MG.
     Route: 042
     Dates: start: 20100318, end: 20110308
  2. FLUOROURACIL [Suspect]
     Dosage: LAST DOSE PRIOR TO SAE: 10 JUN 2010, FORM: VIALS, DOSE LEVEL: 960 MG.
     Route: 042
     Dates: start: 20100429
  3. TRASTUZUMAB [Suspect]
     Dosage: LOADING DOSE
     Route: 042
     Dates: start: 20100225
  4. TRASTUZUMAB [Suspect]
     Route: 042
     Dates: start: 20110309
  5. CYCLOPHOSPHAMIDE [Suspect]
     Dosage: LAST DOSE PRIOR TO SAE:10 JUNE 2010, FORM: VIALS, DOSE LEVEL: 960 MG.
     Route: 042
     Dates: start: 20100429
  6. BEVACIZUMAB [Suspect]
     Route: 042
     Dates: start: 20110309
  7. EPIRUBICIN [Suspect]
     Dosage: LAST DOSE PRIOR TO SAE: 10 JUNE 2010. FORM: VIALS, DOSE LEVEL: 144 MG.
     Route: 042
     Dates: start: 20100429
  8. BEVACIZUMAB [Suspect]
     Dosage: DOSE LEVEL: 945 MG. LAST DOSE PRIOR TO SAE: 03 FEB 2011 AND FORM: VIALS
     Route: 042
     Dates: start: 20100225, end: 20110308
  9. DOCETAXEL [Suspect]
     Dosage: DOSE LEVEL; 165 MG.  LAST DOSE PRIOR TO SAE; 08 APR 2010. FORM: VIALS
     Route: 042
     Dates: start: 20100225

REACTIONS (2)
  - URINARY TRACT INFECTION [None]
  - MEDICAL DEVICE COMPLICATION [None]
